FAERS Safety Report 11456584 (Version 1)
Quarter: 2015Q3

REPORT INFORMATION
  Report Type: Report from Study
  Country: US (occurrence: US)
  Receive Date: 20150903
  Receipt Date: 20150903
  Transmission Date: 20151125
  Serious: Yes (Hospitalization)
  Sender: FDA-Public Use
  Company Number: US-ACTELION-A-US2015-123365

PATIENT
  Age: 30 Year
  Sex: Female

DRUGS (1)
  1. MACITENTAN [Suspect]
     Active Substance: MACITENTAN
     Indication: PULMONARY ARTERIAL HYPERTENSION
     Dosage: 10 MG, UNK
     Route: 048
     Dates: start: 20150803

REACTIONS (3)
  - Arteriovenous fistula aneurysm [Recovered/Resolved]
  - Peripheral swelling [Recovered/Resolved]
  - Arteriovenous fistula operation [Unknown]
